FAERS Safety Report 19840000 (Version 1)
Quarter: 2021Q3

REPORT INFORMATION
  Report Type: Spontaneous
  Country: US (occurrence: US)
  Receive Date: 20210916
  Receipt Date: 20210916
  Transmission Date: 20211014
  Serious: Yes (Hospitalization)
  Sender: FDA-Public Use
  Company Number: None

PATIENT
  Age: 58 Year
  Sex: Male
  Weight: 117.9 kg

DRUGS (20)
  1. OZEMPIC [Suspect]
     Active Substance: SEMAGLUTIDE
     Indication: TYPE 2 DIABETES MELLITUS
     Dosage: ?          OTHER FREQUENCY:WEEKLY;?
     Route: 058
     Dates: start: 20210801, end: 20210815
  2. ALLOPURINOL. [Concomitant]
     Active Substance: ALLOPURINOL
  3. BELATACEPT [Concomitant]
     Active Substance: BELATACEPT
  4. LINACLOTIDE [Concomitant]
     Active Substance: LINACLOTIDE
  5. DELTASONE [Concomitant]
     Active Substance: PREDNISONE
  6. INDERAL [Concomitant]
     Active Substance: PROPRANOLOL HYDROCHLORIDE
  7. AMLODIPINE [Concomitant]
     Active Substance: AMLODIPINE BESYLATE
  8. CALCITRIOL. [Concomitant]
     Active Substance: CALCITRIOL
  9. HYDRALAZINE [Concomitant]
     Active Substance: HYDRALAZINE HYDROCHLORIDE
  10. CELLCEPT [Concomitant]
     Active Substance: MYCOPHENOLATE MOFETIL\MYCOPHENOLATE MOFETIL HYDROCHLORIDE
  11. PAMELOR [Concomitant]
     Active Substance: NORTRIPTYLINE HYDROCHLORIDE
  12. FLOMAX [Concomitant]
     Active Substance: TAMSULOSIN HYDROCHLORIDE
  13. PRILOSEC [Concomitant]
     Active Substance: OMEPRAZOLE MAGNESIUM
  14. BISACODYL. [Concomitant]
     Active Substance: BISACODYL
  15. DOCUSATE [Concomitant]
     Active Substance: DOCUSATE
  16. FINASTERIDE. [Concomitant]
     Active Substance: FINASTERIDE
  17. HYDROCHLOROTHIAZIDE. [Concomitant]
     Active Substance: HYDROCHLOROTHIAZIDE
  18. LANTUS U?100 SOLOSTAR [Concomitant]
  19. LACTULOSE. [Concomitant]
     Active Substance: LACTULOSE
  20. HUMALOG U?100 [Concomitant]

REACTIONS (8)
  - Abdominal pain [None]
  - Infusion related reaction [None]
  - Headache [None]
  - Chills [None]
  - Acute kidney injury [None]
  - Cold sweat [None]
  - Malaise [None]
  - Metabolic acidosis [None]

NARRATIVE: CASE EVENT DATE: 20210913
